FAERS Safety Report 12364905 (Version 2)
Quarter: 2016Q2

REPORT INFORMATION
  Report Type: Spontaneous
  Country: JP (occurrence: JP)
  Receive Date: 20160513
  Receipt Date: 20160620
  Transmission Date: 20160815
  Serious: Yes (Death, Other)
  Sender: FDA-Public Use
  Company Number: JP-ROCHE-1642055

PATIENT
  Age: 92 Year
  Sex: Female
  Weight: 42 kg

DRUGS (6)
  1. ACTIVACIN [Suspect]
     Active Substance: ALTEPLASE
     Indication: CEREBRAL INFARCTION
     Dosage: SINGLE DOSE
     Route: 042
     Dates: start: 20140107, end: 20140107
  2. GLYCEREB [Concomitant]
     Route: 065
     Dates: start: 20140107, end: 20140109
  3. TANATRIL [Concomitant]
     Active Substance: IMIDAPRIL
     Route: 065
     Dates: start: 20140107, end: 20140108
  4. VASOLAN [Concomitant]
     Active Substance: VERAPAMIL HYDROCHLORIDE
     Route: 065
     Dates: start: 20140107, end: 20140108
  5. ARTIST [Concomitant]
     Active Substance: CARVEDILOL
     Route: 065
     Dates: start: 20140107, end: 20140108
  6. EDARAVONE [Concomitant]
     Active Substance: EDARAVONE
     Route: 065
     Dates: start: 20140107, end: 20140109

REACTIONS (2)
  - Haemorrhagic infarction [Not Recovered/Not Resolved]
  - Brain herniation [Fatal]

NARRATIVE: CASE EVENT DATE: 20140108
